FAERS Safety Report 23229093 (Version 1)
Quarter: 2023Q4

REPORT INFORMATION
  Report Type: Spontaneous
  Country: US (occurrence: None)
  Receive Date: 20231127
  Receipt Date: 20231127
  Transmission Date: 20240109
  Serious: Yes (Other)
  Sender: FDA-Public Use
  Company Number: US-ROCHE-3460029

PATIENT
  Age: 60 Year
  Sex: Female

DRUGS (1)
  1. OCREVUS [Suspect]
     Active Substance: OCRELIZUMAB
     Indication: Product used for unknown indication
     Dosage: THEN EVERY 6 MONTHS
     Route: 042
     Dates: start: 20230711

REACTIONS (4)
  - Cerebral disorder [Unknown]
  - Headache [Unknown]
  - Spinal pain [Unknown]
  - Fatigue [Unknown]
